FAERS Safety Report 12617758 (Version 1)
Quarter: 2016Q3

REPORT INFORMATION
  Report Type: Spontaneous
  Country: AU (occurrence: AU)
  Receive Date: 20160803
  Receipt Date: 20160803
  Transmission Date: 20161109
  Serious: Yes (Hospitalization, Other)
  Sender: FDA-Public Use
  Company Number: AU-IPSEN BIOPHARMACEUTICALS, INC.-2016-06180

PATIENT
  Age: 39 Year
  Sex: Female

DRUGS (6)
  1. RESTYLANE [Suspect]
     Active Substance: HYALURONIC ACID
     Indication: SKIN COSMETIC PROCEDURE
     Dates: start: 20150625, end: 20150625
  2. RESTYLANE [Suspect]
     Active Substance: HYALURONIC ACID
     Indication: SKIN COSMETIC PROCEDURE
  3. RESTYLANE [Suspect]
     Active Substance: HYALURONIC ACID
     Indication: SKIN COSMETIC PROCEDURE
  4. DYSPORT [Suspect]
     Active Substance: ABOBOTULINUMTOXINA
     Indication: PRODUCT USE ISSUE
  5. RESTYLANE [Suspect]
     Active Substance: HYALURONIC ACID
     Indication: SKIN COSMETIC PROCEDURE
  6. DYSPORT [Suspect]
     Active Substance: ABOBOTULINUMTOXINA
     Indication: SKIN WRINKLING
     Dosage: 50 IU
     Route: 065
     Dates: start: 20150625, end: 20150625

REACTIONS (21)
  - Hypoaesthesia [Not Recovered/Not Resolved]
  - Injection site warmth [Recovered/Resolved]
  - Paraesthesia [Not Recovered/Not Resolved]
  - Ear infection [Unknown]
  - Dry eye [Recovering/Resolving]
  - Agitation [Recovering/Resolving]
  - Macular degeneration [Unknown]
  - Anosmia [Unknown]
  - Injection site swelling [Recovered/Resolved]
  - Injection site bruising [Unknown]
  - Blepharitis [Unknown]
  - Ageusia [Unknown]
  - Eye infection [Unknown]
  - Influenza like illness [Unknown]
  - Malaise [Unknown]
  - Tension headache [Unknown]
  - Eye irritation [Recovering/Resolving]
  - Anxiety [Recovering/Resolving]
  - Paranoia [Unknown]
  - Dizziness [Unknown]
  - Injection site erythema [Recovered/Resolved]

NARRATIVE: CASE EVENT DATE: 2015
